FAERS Safety Report 20757578 (Version 1)
Quarter: 2022Q2

REPORT INFORMATION
  Report Type: Spontaneous
  Country: GB (occurrence: None)
  Receive Date: 20220427
  Receipt Date: 20220427
  Transmission Date: 20220720
  Serious: No
  Sender: FDA-Public Use
  Company Number: None

PATIENT
  Age: 3 Month
  Sex: Male

DRUGS (2)
  1. DEXAMETHASONE [Suspect]
     Active Substance: DEXAMETHASONE
  2. DEXTROMETHORPHAN [Suspect]
     Active Substance: DEXTROMETHORPHAN

REACTIONS (2)
  - Abdominal discomfort [None]
  - Heart rate decreased [None]
